FAERS Safety Report 6216932-8 (Version None)
Quarter: 2009Q2

REPORT INFORMATION
  Report Type: 
  Country: None (occurrence: None)
  Receive Date: 20090604
  Receipt Date: 20090526
  Transmission Date: 20091009
  Serious: Yes (Hospitalization)
  Sender: FDA-Public Use
  Company Number: 2009US001902

PATIENT
  Age: 70 Year
  Sex: Female
  Weight: 104.3 kg

DRUGS (1)
  1. AMEVIVE [Suspect]
     Indication: PSORIASIS
     Dosage: 15 MG WEEKLY, INTRAMUSCULAR
     Route: 030
     Dates: start: 20050208

REACTIONS (1)
  - CLOSTRIDIAL INFECTION [None]
